FAERS Safety Report 5254580-7 (Version None)
Quarter: 2007Q1

REPORT INFORMATION
  Report Type: 
  Country: None (occurrence: None)
  Receive Date: 20070302
  Receipt Date: 20070222
  Transmission Date: 20070707
  Serious: Yes (Disabling)
  Sender: FDA-Public Use
  Company Number: IE-MERCK-0702GBR00118

PATIENT
  Age: 80 Year
  Sex: Male

DRUGS (5)
  1. COSOPT [Suspect]
     Indication: GLAUCOMA
     Route: 047
     Dates: start: 20070201, end: 20070221
  2. ASPIRIN [Concomitant]
     Route: 065
  3. PHENYTOIN [Concomitant]
     Route: 065
  4. HYPROMELLOSE [Concomitant]
     Route: 065
  5. LEVOBUNOLOL HYDROCHLORIDE [Concomitant]
     Route: 065

REACTIONS (4)
  - EYE IRRITATION [None]
  - EYE SWELLING [None]
  - LACRIMATION INCREASED [None]
  - OCULAR HYPERAEMIA [None]
